FAERS Safety Report 7052280-4 (Version None)
Quarter: 2010Q4

REPORT INFORMATION
  Report Type: 
  Country: None (occurrence: None)
  Receive Date: 20101018
  Receipt Date: 20101018
  Transmission Date: 20110411
  Serious: Yes (Hospitalization)
  Sender: FDA-Public Use
  Company Number: None

PATIENT
  Sex: Female
  Weight: 76.3 kg

DRUGS (12)
  1. BENDAMUSTINE [Suspect]
     Indication: SMALL CELL LUNG CANCER STAGE UNSPECIFIED
     Dosage: 218MG D1 + D2 IV
     Route: 042
  2. ALLOPURINOL [Concomitant]
  3. CALCIUM WITH D [Concomitant]
  4. CRESTOR [Concomitant]
  5. ETODULAC [Concomitant]
  6. GLUCOSAMINE WITH CHONDROITIN [Concomitant]
  7. LANTUS [Concomitant]
  8. ONGLYZA [Concomitant]
  9. SULAR [Concomitant]
  10. SYNTHROID [Concomitant]
  11. TEKTURNA [Concomitant]
  12. TRIAMTERENE [Concomitant]

REACTIONS (4)
  - CLOSTRIDIUM TEST POSITIVE [None]
  - DIARRHOEA [None]
  - NAUSEA [None]
  - RENAL FAILURE [None]
